FAERS Safety Report 5371734-X (Version None)
Quarter: 2007Q2

REPORT INFORMATION
  Report Type: 
  Country: None (occurrence: None)
  Receive Date: 20070627
  Receipt Date: 20070618
  Transmission Date: 20071010
  Serious: Yes (Death, Hospitalization, Other)
  Sender: FDA-Public Use
  Company Number: JP-ELI_LILLY_AND_COMPANY-JP200706002320

PATIENT
  Age: 81 Year
  Sex: Male
  Weight: 39 kg

DRUGS (5)
  1. GEMZAR [Suspect]
     Indication: GALLBLADDER CANCER RECURRENT
     Dosage: 1000 MG/M2, UNK
     Route: 042
     Dates: start: 20061212, end: 20070529
  2. HARNAL [Concomitant]
     Dosage: 0.2 MG, DAILY (1/D)
     Route: 048
     Dates: start: 20061213, end: 20070605
  3. SENNOSIDE A+B [Concomitant]
     Dosage: 12 MG, 2/D
     Route: 048
     Dates: start: 20061213, end: 20070605
  4. GRAN [Concomitant]
     Dosage: 75 UG, UNK
     Route: 058
     Dates: start: 20061219
  5. LEUCON [Concomitant]
     Dosage: 10 MG, 3/D
     Route: 048
     Dates: start: 20061222, end: 20070605

REACTIONS (3)
  - HAEMOGLOBIN DECREASED [None]
  - INTERSTITIAL LUNG DISEASE [None]
  - PLATELET COUNT DECREASED [None]
